FAERS Safety Report 7712786-9 (Version None)
Quarter: 2011Q3

REPORT INFORMATION
  Report Type: 
  Country: None (occurrence: None)
  Receive Date: 20110826
  Receipt Date: 20110817
  Transmission Date: 20111222
  Serious: Yes (Congenital Anomaly)
  Sender: FDA-Public Use
  Company Number: US-VIIV HEALTHCARE LIMITED-A0942324A

PATIENT
  Sex: Female
  Weight: 2.9 kg

DRUGS (4)
  1. RETROVIR [Suspect]
     Dosage: 1MGKH SINGLE DOSE
     Route: 064
     Dates: start: 20110411, end: 20110412
  2. RETROVIR [Suspect]
     Indication: ANTIRETROVIRAL THERAPY
     Dosage: 2MGKH SINGLE DOSE
     Route: 064
     Dates: start: 20110411, end: 20110411
  3. TRUVADA [Suspect]
     Indication: ANTIVIRAL TREATMENT
     Dosage: 500MGD PER DAY
     Route: 064
     Dates: start: 20101101
  4. ISENTRESS [Suspect]
     Indication: ANTIVIRAL TREATMENT
     Dosage: 800MGD PER DAY
     Route: 064
     Dates: start: 20101101

REACTIONS (2)
  - CONGENITAL ANOMALY [None]
  - MATERNAL EXPOSURE DURING PREGNANCY [None]
